FAERS Safety Report 15896719 (Version 1)
Quarter: 2019Q1

REPORT INFORMATION
  Report Type: Report from Study
  Country: IT (occurrence: IT)
  Receive Date: 20190131
  Receipt Date: 20190131
  Transmission Date: 20190417
  Serious: Yes (Other)
  Sender: FDA-Public Use
  Company Number: IT-MYLANLABS-2018M1084773

PATIENT
  Age: 56 Year
  Sex: Female

DRUGS (3)
  1. AUGMENTIN [Suspect]
     Active Substance: AMOXICILLIN\CLAVULANATE POTASSIUM
     Indication: EAR INFECTION
     Dosage: 2 DOSAGE FORM, QD
     Route: 065
     Dates: start: 20180602, end: 20180603
  2. BRUFEN 600 MG GRANULATO EFFERVESCENTE [Suspect]
     Active Substance: IBUPROFEN
     Indication: EAR INFECTION
     Dosage: 2 DF, TOTAL
     Route: 048
     Dates: start: 20180604, end: 20180604
  3. METFORMIN HYDROCHLORIDE. [Concomitant]
     Active Substance: METFORMIN HYDROCHLORIDE
     Indication: PRODUCT USED FOR UNKNOWN INDICATION
     Dosage: 2000 MG, UNK
     Route: 048

REACTIONS (3)
  - Sensation of foreign body [Recovering/Resolving]
  - Presyncope [Recovering/Resolving]
  - Urticaria [Recovering/Resolving]

NARRATIVE: CASE EVENT DATE: 20180602
